FAERS Safety Report 19139258 (Version 1)
Quarter: 2021Q2

REPORT INFORMATION
  Report Type: Spontaneous
  Country: US (occurrence: US)
  Receive Date: 20210414
  Receipt Date: 20210414
  Transmission Date: 20210717
  Serious: No
  Sender: FDA-Public Use
  Company Number: None

PATIENT
  Age: 16 Year
  Sex: Male
  Weight: 81 kg

DRUGS (5)
  1. VITAMIN C [Concomitant]
     Active Substance: ASCORBIC ACID
  2. VITAMIN D [Concomitant]
     Active Substance: VITAMIN D NOS
  3. MULTIVITAMIN [Concomitant]
     Active Substance: VITAMINS
  4. GUANFACINE 2MG [Suspect]
     Active Substance: GUANFACINE
     Indication: ATTENTION DEFICIT HYPERACTIVITY DISORDER
     Dosage: ?          QUANTITY:1 CAPSULE(S);?
     Route: 048
  5. QUETIAPINE FUMARATE. [Suspect]
     Active Substance: QUETIAPINE FUMARATE

REACTIONS (5)
  - Recalled product [None]
  - Asthenia [None]
  - Hypotension [None]
  - Product contamination chemical [None]
  - Somnolence [None]

NARRATIVE: CASE EVENT DATE: 20210412
